FAERS Safety Report 18806569 (Version 1)
Quarter: 2021Q1

REPORT INFORMATION
  Report Type: Spontaneous
  Country: RO (occurrence: RO)
  Receive Date: 20210129
  Receipt Date: 20210129
  Transmission Date: 20210419
  Serious: Yes (Hospitalization)
  Sender: FDA-Public Use
  Company Number: RO-GLENMARK PHARMACEUTICALS-2021GMK051701

PATIENT
  Age: 66 Year
  Sex: Female

DRUGS (13)
  1. OLANZAPINE. [Suspect]
     Active Substance: OLANZAPINE
     Indication: DEPRESSION
     Dosage: 15 MILLIGRAM, QD
     Route: 065
     Dates: start: 201205
  2. LORAZEPAM. [Concomitant]
     Active Substance: LORAZEPAM
     Indication: PSYCHOTIC DISORDER
  3. NEBIVOLOL HYDROCHLORIDE [Suspect]
     Active Substance: NEBIVOLOL HYDROCHLORIDE
     Indication: PRODUCT USED FOR UNKNOWN INDICATION
     Dosage: UNK (INGESTED 150 TABLETS OF ZOPICLONA, LORAZEPAM AND NEBIVOLOL)
     Route: 048
  4. RISPERIDONE. [Concomitant]
     Active Substance: RISPERIDONE
     Indication: PSYCHOTIC DISORDER
  5. ZOPICLONA [Suspect]
     Active Substance: ZOPICLONE
     Indication: PRODUCT USED FOR UNKNOWN INDICATION
     Dosage: UNK (INGESTED 150 TABLETS OF ZOPICLONA, LORAZEPAM AND NEBIVOLOL)
     Route: 048
  6. RISPERIDONE. [Concomitant]
     Active Substance: RISPERIDONE
     Indication: DEPRESSION
     Dosage: 5 MILLILITER, QD
     Route: 065
  7. BROMAZEPAM [Suspect]
     Active Substance: BROMAZEPAM
     Indication: DEPRESSION
     Dosage: 1.5 MILLIGRAM, BID
     Route: 065
     Dates: start: 201205
  8. MIRTAZAPINE. [Suspect]
     Active Substance: MIRTAZAPINE
     Indication: DEPRESSION
     Dosage: 30 MILLIGRAM, QD
     Route: 065
     Dates: start: 201205
  9. LORAZEPAM. [Suspect]
     Active Substance: LORAZEPAM
     Indication: PRODUCT USED FOR UNKNOWN INDICATION
     Dosage: UNK (INGESTED 150 TABLETS OF ZOPICLONA, LORAZEPAM AND NEBIVOLOL)
     Route: 048
  10. OLANZAPINE. [Suspect]
     Active Substance: OLANZAPINE
     Indication: PSYCHOTIC DISORDER
     Dosage: UNK
     Route: 065
     Dates: end: 2018
  11. MIRTAZAPINE. [Suspect]
     Active Substance: MIRTAZAPINE
     Indication: PSYCHOTIC DISORDER
  12. BROMAZEPAM [Suspect]
     Active Substance: BROMAZEPAM
     Indication: PSYCHOTIC DISORDER
  13. LORAZEPAM. [Concomitant]
     Active Substance: LORAZEPAM
     Indication: DEPRESSION
     Dosage: 1MG, 1CPX2/DAY
     Route: 065

REACTIONS (10)
  - Feeling abnormal [Unknown]
  - Intentional overdose [Unknown]
  - Anxiety [Unknown]
  - Persecutory delusion [Unknown]
  - Toxicity to various agents [Unknown]
  - Drug intolerance [Unknown]
  - Insomnia [Unknown]
  - Affective disorder [Unknown]
  - Affect lability [Unknown]
  - Helplessness [Unknown]
